FAERS Safety Report 10534616 (Version 1)
Quarter: 2014Q4

REPORT INFORMATION
  Report Type: Spontaneous
  Country: JP (occurrence: JP)
  Receive Date: 20141022
  Receipt Date: 20141022
  Transmission Date: 20150529
  Serious: Yes (Hospitalization, Other)
  Sender: FDA-Public Use
  Company Number: JP-GLAXOSMITHKLINE-JP2014JPN003134

PATIENT
  Age: 57 Year
  Sex: Male

DRUGS (2)
  1. EPZICOM [Suspect]
     Active Substance: ABACAVIR SULFATE\LAMIVUDINE
     Indication: HIV INFECTION
     Dosage: 1 DF, QD
  2. REYATAZ [Concomitant]
     Active Substance: ATAZANAVIR SULFATE
     Indication: HIV INFECTION
     Dosage: UNK
     Route: 048

REACTIONS (7)
  - Cognitive disorder [Recovering/Resolving]
  - Personality change [Recovering/Resolving]
  - White matter lesion [Recovering/Resolving]
  - Amnesia [Recovering/Resolving]
  - Dysarthria [Recovering/Resolving]
  - Drug resistance [Unknown]
  - AIDS dementia complex [Recovering/Resolving]

NARRATIVE: CASE EVENT DATE: 201112
